FAERS Safety Report 5340514-3 (Version None)
Quarter: 2007Q2

REPORT INFORMATION
  Report Type: 
  Country: None (occurrence: None)
  Receive Date: 20070531
  Receipt Date: 20070522
  Transmission Date: 20071010
  Serious: Yes (Other)
  Sender: FDA-Public Use
  Company Number: US-PFIZER INC-2007003628

PATIENT
  Sex: Male
  Weight: 99.8 kg

DRUGS (31)
  1. LIPITOR [Suspect]
     Indication: LIPIDS INCREASED
  2. FERROUS SULFATE [Concomitant]
  3. SPIRONOLACTONE [Concomitant]
     Dosage: DAILY DOSE:50MG
  4. ADVAIR DISKUS 100/50 [Concomitant]
     Dosage: TEXT:1 PUFF TWO TIMES DAILY
  5. AMLODIPINE [Concomitant]
     Dosage: DAILY DOSE:5MG
  6. ACETYLSALICYLIC ACID SRT [Concomitant]
     Dosage: DAILY DOSE:81MG
  7. CALTRATE [Concomitant]
  8. CHROMIUM [Concomitant]
     Dosage: DAILY DOSE:200MCG
  9. DILTIAZEM [Concomitant]
  10. GLUCOTROL XL [Concomitant]
  11. K-DUR 10 [Concomitant]
  12. NEORAL [Concomitant]
  13. TOPROL-XL [Concomitant]
     Dosage: DAILY DOSE:50MG
  14. VITAMIN B-12 [Concomitant]
     Dosage: DAILY DOSE:100MCG
  15. ALPHAGAN [Concomitant]
     Dosage: DAILY DOSE:1DROP
  16. ARANESP [Concomitant]
     Dosage: DAILY DOSE:300MCG
  17. AVANDIA [Concomitant]
     Dosage: DAILY DOSE:4MG
  18. CELLCEPT [Concomitant]
  19. CINNAMON [Concomitant]
  20. GLUCOSAMINE W/CHONDROITIN SULFATES [Concomitant]
     Dosage: TEXT:ONE TABLET TWICE DAILY
  21. HYTRIN [Concomitant]
     Dosage: DAILY DOSE:5MG
  22. REGULAR INSULIN [Concomitant]
  23. LUMIGAN [Concomitant]
     Dosage: DAILY DOSE:1DROP
  24. VITAMIN CAP [Concomitant]
     Dosage: TEXT:ONE TABLET DAILY
  25. PEPCID [Concomitant]
     Dosage: DAILY DOSE:20MG
  26. TRAZODONE HCL [Concomitant]
     Dosage: DAILY DOSE:100MG
  27. LEXAPRO [Concomitant]
     Dosage: DAILY DOSE:20MG
  28. FUROSEMIDE [Concomitant]
  29. MAGNESIUM OXIDE [Concomitant]
  30. NPH INSULIN [Concomitant]
     Dosage: DAILY DOSE:26I.U.
  31. PREDNISONE TAB [Concomitant]
     Dosage: DAILY DOSE:5MG

REACTIONS (1)
  - AMNESIA [None]
